FAERS Safety Report 23443894 (Version 1)
Quarter: 2024Q1

REPORT INFORMATION
  Report Type: Spontaneous
  Country: US (occurrence: US)
  Receive Date: 20240125
  Receipt Date: 20240125
  Transmission Date: 20240410
  Serious: Yes (Other)
  Sender: FDA-Public Use
  Company Number: US-PFIZER INC-202400021107

PATIENT

DRUGS (1)
  1. FUROSEMIDE [Suspect]
     Active Substance: FUROSEMIDE
     Dosage: UNK

REACTIONS (12)
  - Monoplegia [Unknown]
  - Seizure [Unknown]
  - Near death experience [Unknown]
  - Blood potassium decreased [Unknown]
  - Paraesthesia oral [Unknown]
  - Muscle twitching [Unknown]
  - Blood magnesium decreased [Unknown]
  - Hand deformity [Unknown]
  - Eye disorder [Unknown]
  - Nervousness [Unknown]
  - Cardiac disorder [Unknown]
  - Chest discomfort [Unknown]
